FAERS Safety Report 26152124 (Version 1)
Quarter: 2025Q4

REPORT INFORMATION
  Report Type: Report from Study
  Country: EU (occurrence: EU)
  Receive Date: 20251214
  Receipt Date: 20251214
  Transmission Date: 20260118
  Serious: Yes (Hospitalization)
  Sender: ABBVIE
  Company Number: EU-ABBVIE-6587261

PATIENT
  Age: 74 Year
  Sex: Female
  Weight: 73 kg

DRUGS (6)
  1. CARBIDOPA\LEVODOPA [Suspect]
     Active Substance: CARBIDOPA\LEVODOPA
     Indication: Parkinson^s disease
     Dosage: AVERAGE NUMBER OF EXTRA DOSES PER DAY(24H)=2. NIGHT CONTINUOUS DOSE: 0, CONTINUOUS DOSE: 3.3, ATF...
     Route: 050
     Dates: start: 20200113
  2. CARBIDOPA\LEVODOPA [Suspect]
     Active Substance: CARBIDOPA\LEVODOPA
  3. BENSERAZIDE\LEVODOPA [Concomitant]
     Active Substance: BENSERAZIDE\LEVODOPA
     Indication: Parkinson^s disease
     Dates: start: 20190806, end: 20200113
  4. BENSERAZIDE\LEVODOPA [Concomitant]
     Active Substance: BENSERAZIDE\LEVODOPA
     Indication: Parkinson^s disease
     Dates: start: 20200113, end: 20200122
  5. PRAMIPEXOLE [Concomitant]
     Active Substance: PRAMIPEXOLE
     Indication: Product used for unknown indication
     Dosage: MIRAPEXIN 2.10
     Dates: start: 20190806, end: 20200113
  6. STALEVO [Concomitant]
     Active Substance: CARBIDOPA\ENTACAPONE\LEVODOPA
     Indication: Product used for unknown indication
     Dosage: STALEVO 100
     Dates: start: 20190806, end: 20200113

REACTIONS (3)
  - Neurological rehabilitation [Unknown]
  - Dyskinesia [Unknown]
  - Obstruction [Unknown]

NARRATIVE: CASE EVENT DATE: 20251209
